FAERS Safety Report 25609187 (Version 1)
Quarter: 2025Q3

REPORT INFORMATION
  Report Type: Spontaneous
  Country: US (occurrence: US)
  Receive Date: 20250727
  Receipt Date: 20250727
  Transmission Date: 20251020
  Serious: Yes (Other)
  Sender: DR REDDYS
  Company Number: US-DRL-USA-USA/2025/07/011222

PATIENT
  Sex: Female

DRUGS (2)
  1. AMIODARONE [Suspect]
     Active Substance: AMIODARONE
     Indication: Product used for unknown indication
  2. NITROFURANTOIN [Suspect]
     Active Substance: NITROFURANTOIN
     Indication: Product used for unknown indication

REACTIONS (1)
  - Pulmonary fibrosis [Unknown]
